FAERS Safety Report 8549295-3 (Version None)
Quarter: 2012Q3

REPORT INFORMATION
  Report Type: 
  Country: None (occurrence: None)
  Receive Date: 20120730
  Receipt Date: 20120719
  Transmission Date: 20120928
  Serious: Yes (Other)
  Sender: FDA-Public Use
  Company Number: US-BAYER-2012-075258

PATIENT
  Age: 74 Year
  Sex: Male
  Weight: 86.18 kg

DRUGS (10)
  1. RIVAROXABAN [Interacting]
     Indication: CEREBROVASCULAR ACCIDENT PROPHYLAXIS
  2. FLOMAX [Concomitant]
     Indication: PROSTATIC DISORDER
     Dosage: .4 MG, QD
     Route: 048
     Dates: start: 20110101
  3. FISH OIL [Concomitant]
     Indication: CARDIOVASCULAR EVENT PROPHYLAXIS
     Dosage: 1200 MG, TID
     Route: 048
     Dates: start: 20090101
  4. ASPIRIN [Concomitant]
     Dosage: 81 MG, QD
     Route: 048
     Dates: start: 20120717
  5. TRAZODONE HYDROCHLORIDE [Concomitant]
     Indication: SLEEP DISORDER
     Dosage: 50 MG, UNK
     Route: 048
     Dates: start: 20120101
  6. SIMVASTATIN [Concomitant]
     Indication: BLOOD CHOLESTEROL INCREASED
     Dosage: 40 MG, QD
     Route: 048
     Dates: start: 20090101
  7. LISINOPRIL [Concomitant]
     Indication: CARDIAC DISORDER
     Dosage: 2.5 MG, QD
     Route: 048
     Dates: start: 20090101
  8. ASPIRIN [Suspect]
     Indication: CARDIOVASCULAR EVENT PROPHYLAXIS
     Dosage: 325 MG, QD
     Route: 048
     Dates: end: 20120716
  9. RIVAROXABAN [Interacting]
     Indication: ATRIAL FIBRILLATION
     Dosage: 20 MG, QD
     Route: 048
     Dates: start: 20120717, end: 20120717
  10. CASODEX [Concomitant]
     Indication: PROSTATIC DISORDER
     Dosage: 50 MG, QD
     Route: 048
     Dates: start: 20110101

REACTIONS (1)
  - RECTAL HAEMORRHAGE [None]
